FAERS Safety Report 8790396 (Version 1)
Quarter: 2012Q4

REPORT INFORMATION
  Report Type: 
  Country: US (occurrence: US)
  Receive Date: 20120917
  Receipt Date: 20120917
  Transmission Date: 20130627
  Serious: No
  Sender: FDA-Public Use
  Company Number: US-009507513-1208USA003429

PATIENT

DRUGS (3)
  1. NUVARING [Suspect]
     Indication: CONTRACEPTION
     Dosage: 1 ring for 3 wks, 1 wk off
     Route: 067
  2. MONISTAT [Concomitant]
  3. PENTASA [Concomitant]
     Dosage: 500 mg, bid

REACTIONS (2)
  - Muscle spasms [Unknown]
  - Skin warm [Unknown]
